FAERS Safety Report 20562424 (Version 1)
Quarter: 2022Q1

REPORT INFORMATION
  Report Type: Spontaneous
  Country: US (occurrence: None)
  Receive Date: 20220307
  Receipt Date: 20220307
  Transmission Date: 20220423
  Serious: Yes (Hospitalization)
  Sender: FDA-Public Use
  Company Number: None

PATIENT

DRUGS (1)
  1. TYVASO [Suspect]
     Active Substance: TREPROSTINIL
     Route: 055

REACTIONS (5)
  - Product prescribing issue [None]
  - Product prescribing issue [None]
  - Extra dose administered [None]
  - Transcription medication error [None]
  - Communication disorder [None]
